FAERS Safety Report 4878696-X (Version None)
Quarter: 2005Q4

REPORT INFORMATION
  Report Type: 
  Country: None (occurrence: None)
  Receive Date: 20051209
  Receipt Date: 20050509
  Transmission Date: 20060501
  Serious: Yes (Other)
  Sender: FDA-Public Use
  Company Number: USA-2005-0020204

PATIENT
  Sex: Female

DRUGS (4)
  1. OXYCONTIN [Suspect]
  2. PERCOCET [Suspect]
  3. VICODIN [Suspect]
  4. DILAUDID [Suspect]

REACTIONS (7)
  - ASTHENIA [None]
  - DRUG ABUSER [None]
  - DRUG DEPENDENCE [None]
  - DRUG WITHDRAWAL SYNDROME [None]
  - EUPHORIC MOOD [None]
  - OVERDOSE [None]
  - VOMITING [None]
